FAERS Safety Report 5404739-0 (Version None)
Quarter: 2007Q3

REPORT INFORMATION
  Report Type: 
  Country: None (occurrence: None)
  Receive Date: 20070801
  Receipt Date: 20070723
  Transmission Date: 20080115
  Serious: Yes (Other)
  Sender: FDA-Public Use
  Company Number: 2007AL002996

PATIENT
  Age: 42 Year
  Sex: Female

DRUGS (1)
  1. IBUPROFEN [Suspect]
     Dosage: TID;PO
     Route: 048

REACTIONS (5)
  - ANAEMIA [None]
  - GASTROINTESTINAL DISORDER [None]
  - SMALL INTESTINAL OBSTRUCTION [None]
  - SMALL INTESTINAL STENOSIS [None]
  - WEIGHT DECREASED [None]
